FAERS Safety Report 21758287 (Version 1)
Quarter: 2022Q4

REPORT INFORMATION
  Report Type: Spontaneous
  Country: ES (occurrence: ES)
  Receive Date: 20221221
  Receipt Date: 20221221
  Transmission Date: 20230113
  Serious: Yes (Other)
  Sender: FDA-Public Use
  Company Number: ES-SUN PHARMACEUTICAL INDUSTRIES LTD-2022RR-369366

PATIENT
  Age: 42 Year
  Sex: Female

DRUGS (1)
  1. LEVETIRACETAM [Suspect]
     Active Substance: LEVETIRACETAM
     Indication: Tuberous sclerosis complex
     Dosage: UNK
     Route: 065

REACTIONS (5)
  - Psychotic disorder [Unknown]
  - Abnormal behaviour [Unknown]
  - Hallucination, auditory [Unknown]
  - Depressed mood [Unknown]
  - Anxiety disorder [Unknown]
